FAERS Safety Report 6727980-3 (Version None)
Quarter: 2010Q2

REPORT INFORMATION
  Report Type: 
  Country: None (occurrence: None)
  Receive Date: 20100517
  Receipt Date: 20100506
  Transmission Date: 20101027
  Serious: Yes (Hospitalization)
  Sender: FDA-Public Use
  Company Number: GB-PFIZER INC-2010057034

PATIENT
  Age: 76 Year
  Sex: Male
  Weight: 76.6 kg

DRUGS (12)
  1. BLINDED *NO SUBJECT DRUG [Suspect]
     Indication: PROSTATE CANCER
     Dosage: 37.5 MG, 1X/DAY
     Route: 048
     Dates: start: 20100427, end: 20100505
  2. BLINDED *PLACEBO [Suspect]
     Indication: PROSTATE CANCER
     Dosage: 37.5 MG, 1X/DAY
     Route: 048
     Dates: start: 20100427, end: 20100505
  3. BLINDED SUNITINIB MALATE [Suspect]
     Indication: PROSTATE CANCER
     Dosage: 37.5 MG, 1X/DAY
     Route: 048
     Dates: start: 20100427, end: 20100505
  4. PREDNISOLONE [Suspect]
     Indication: PROSTATE CANCER
     Dosage: 5 MG, 2X/DAY
     Route: 048
     Dates: start: 20100427
  5. SPIRIVA [Concomitant]
     Indication: ASTHMA
     Dosage: UNK
     Route: 055
     Dates: start: 20090401
  6. ADIZEM-XL [Concomitant]
     Indication: HYPERTENSION
     Dosage: 120 MG, 1X/DAY
     Route: 048
     Dates: start: 20081202
  7. ROSUVASTATIN [Concomitant]
     Indication: HYPERLIPIDAEMIA
     Dosage: 10 MG, 1X/DAY
     Route: 048
     Dates: start: 20081202
  8. CALCICHEW-D3 [Concomitant]
     Indication: VITAMIN SUPPLEMENTATION
     Dosage: 1.5 G, 1X/DAY
     Route: 048
     Dates: start: 20070601
  9. CALCICHEW-D3 [Concomitant]
     Dosage: 10 UG, 1X/DAY
     Route: 048
     Dates: start: 20070601
  10. ZOMETA [Concomitant]
     Indication: VITAMIN SUPPLEMENTATION
     Dosage: 4 MG, 4 TIMES WEEKLY
     Route: 042
     Dates: start: 20070601
  11. ACETAMINOPHEN AND CODEINE PHOSPHATE [Concomitant]
     Indication: ANALGESIC THERAPY
     Dosage: 30 MG, AS NEEDED
     Route: 048
     Dates: start: 20081202
  12. ACETAMINOPHEN AND CODEINE PHOSPHATE [Concomitant]
     Dosage: 500 MG, AS NEEDED
     Route: 048
     Dates: start: 20081202

REACTIONS (2)
  - DYSPHAGIA [None]
  - HEADACHE [None]
